FAERS Safety Report 7866228-3 (Version None)
Quarter: 2011Q4

REPORT INFORMATION
  Report Type: 
  Country: None (occurrence: None)
  Receive Date: 20111028
  Receipt Date: 20110516
  Transmission Date: 20120403
  Serious: No
  Sender: FDA-Public Use
  Company Number: US-GLAXOSMITHKLINE-A0927523A

PATIENT
  Age: 44 Year
  Sex: Male

DRUGS (5)
  1. LISINOPRIL [Concomitant]
  2. ADVAIR DISKUS 100/50 [Suspect]
     Indication: ASTHMA
     Dosage: 1PUFF PER DAY
     Route: 055
     Dates: start: 20110406
  3. CLARITIN [Concomitant]
  4. HYDROCODONE BITARTRATE [Concomitant]
  5. ALBUTEROL [Concomitant]

REACTIONS (4)
  - PRODUCTIVE COUGH [None]
  - COUGH [None]
  - DRUG INEFFECTIVE [None]
  - THROAT IRRITATION [None]
